FAERS Safety Report 22649764 (Version 1)
Quarter: 2023Q2

REPORT INFORMATION
  Report Type: Report from Study
  Country: CA (occurrence: CA)
  Receive Date: 20230628
  Receipt Date: 20230628
  Transmission Date: 20230721
  Serious: Yes (Hospitalization, Other)
  Sender: FDA-Public Use
  Company Number: CA-KOREA IPSEN Pharma-2022-27921

PATIENT
  Age: 50 Year
  Sex: Female

DRUGS (2)
  1. LANREOTIDE ACETATE [Suspect]
     Active Substance: LANREOTIDE ACETATE
     Indication: Carcinoid syndrome
     Dosage: 120 MG EVERY 4 WEEKS
     Route: 058
     Dates: start: 20220324
  2. BICTEGRAVIR [Concomitant]
     Active Substance: BICTEGRAVIR

REACTIONS (10)
  - Metastatic carcinoid tumour [Unknown]
  - Metastases to bone [Unknown]
  - Neuroendocrine tumour [Recovered/Resolved]
  - Seizure [Unknown]
  - Pneumonia [Unknown]
  - Central nervous system lesion [Unknown]
  - Metastases to meninges [Unknown]
  - Disease progression [Unknown]
  - Weight decreased [Not Recovered/Not Resolved]
  - Bone pain [Unknown]

NARRATIVE: CASE EVENT DATE: 20220102
